FAERS Safety Report 4355946-X (Version None)
Quarter: 2004Q2

REPORT INFORMATION
  Report Type: 
  Country: None (occurrence: None)
  Receive Date: 20040510
  Receipt Date: 20040429
  Transmission Date: 20050107
  Serious: Yes (Hospitalization, Other)
  Sender: FDA-Public Use
  Company Number: 04-00207

PATIENT
  Age: 55 Year
  Sex: Female
  Weight: 68.9467 kg

DRUGS (11)
  1. ALPRAZOLAM [Suspect]
     Indication: PROPHYLAXIS
     Dosage: 0.5MG, 1 THREE TIMES A DAY, ORAL
     Route: 048
     Dates: start: 19410101, end: 20031101
  2. BUSPIRONE HYDROCHLORIDE [Suspect]
     Indication: PROPHYLAXIS
     Dosage: 10MG, 1 THREE TIMES A DAY, ORAL
     Route: 048
     Dates: start: 20031116, end: 20040116
  3. LOPRESSOR [Concomitant]
  4. LANOXIN [Concomitant]
  5. SYNTHROID [Concomitant]
  6. NEURONTIN [Concomitant]
  7. HYDROCODONE [Concomitant]
  8. FLOVENT [Concomitant]
  9. COMBIVENT [Concomitant]
  10. ISOSORBIDE MONONITRATE [Concomitant]
  11. TOPROL-XL [Concomitant]

REACTIONS (41)
  - ABNORMAL DREAMS [None]
  - ABNORMAL SENSATION IN EYE [None]
  - ALOPECIA [None]
  - APHONIA [None]
  - APPETITE DISORDER [None]
  - BREAST SWELLING [None]
  - BURNING SENSATION [None]
  - CONSTIPATION [None]
  - CONTUSION [None]
  - CRYING [None]
  - DIARRHOEA [None]
  - DRY MOUTH [None]
  - DRY SKIN [None]
  - DYSARTHRIA [None]
  - DYSKINESIA [None]
  - EPISTAXIS [None]
  - EYELID DISORDER [None]
  - FEAR [None]
  - FLATULENCE [None]
  - GLOSSODYNIA [None]
  - HYPOAESTHESIA [None]
  - MENTAL DISORDER [None]
  - MUSCULAR WEAKNESS [None]
  - MYOCARDIAL INFARCTION [None]
  - MYOFASCIAL PAIN SYNDROME [None]
  - NAIL DISORDER [None]
  - NASAL CONGESTION [None]
  - NERVOUS SYSTEM DISORDER [None]
  - PANIC ATTACK [None]
  - PARAESTHESIA [None]
  - PAROSMIA [None]
  - PHARYNGOLARYNGEAL PAIN [None]
  - PNEUMONIA [None]
  - PRURITUS [None]
  - RASH [None]
  - RECTAL HAEMORRHAGE [None]
  - SALIVARY HYPERSECRETION [None]
  - SWELLING FACE [None]
  - TEMPERATURE INTOLERANCE [None]
  - TREMOR [None]
  - WEIGHT INCREASED [None]
